FAERS Safety Report 12317818 (Version 2)
Quarter: 2016Q2

REPORT INFORMATION
  Report Type: Spontaneous
  Country: FR (occurrence: FR)
  Receive Date: 20160429
  Receipt Date: 20160526
  Transmission Date: 20160815
  Serious: Yes (Hospitalization)
  Sender: FDA-Public Use
  Company Number: FR-PFIZER INC-2016220532

PATIENT
  Sex: Male
  Weight: 2.91 kg

DRUGS (8)
  1. ENDOXAN /00021101/ [Suspect]
     Active Substance: CYCLOPHOSPHAMIDE
     Dosage: UNK, SINGLE
     Route: 064
     Dates: start: 20160105, end: 20160105
  2. ENDOXAN /00021101/ [Suspect]
     Active Substance: CYCLOPHOSPHAMIDE
     Dosage: UNK
     Dates: start: 201511
  3. ENDOXAN /00021101/ [Suspect]
     Active Substance: CYCLOPHOSPHAMIDE
     Dosage: UNK, SINGLE
     Route: 064
     Dates: start: 20151215, end: 20151215
  4. FARMORUBICINE [Suspect]
     Active Substance: EPIRUBICIN HYDROCHLORIDE
     Dosage: UNK, SINGLE
     Route: 064
     Dates: start: 20151215, end: 20151215
  5. ENDOXAN /00021101/ [Suspect]
     Active Substance: CYCLOPHOSPHAMIDE
     Dosage: UNK, SINGLE
     Route: 064
     Dates: start: 20160126, end: 20160126
  6. FARMORUBICINE [Suspect]
     Active Substance: EPIRUBICIN HYDROCHLORIDE
     Dosage: UNK, SINGLE
     Route: 064
     Dates: start: 20160105, end: 20160105
  7. FARMORUBICINE [Suspect]
     Active Substance: EPIRUBICIN HYDROCHLORIDE
     Dosage: UNK, SINGLE
     Route: 064
     Dates: start: 20160126, end: 20160126
  8. FARMORUBICINE [Suspect]
     Active Substance: EPIRUBICIN HYDROCHLORIDE
     Dosage: UNK
     Dates: start: 201511

REACTIONS (3)
  - Thymus enlargement [Not Recovered/Not Resolved]
  - Premature baby [Recovered/Resolved]
  - Maternal exposure during pregnancy [Not Recovered/Not Resolved]

NARRATIVE: CASE EVENT DATE: 20160215
